FAERS Safety Report 9663387 (Version 6)
Quarter: 2014Q1

REPORT INFORMATION
  Report Type: Spontaneous
  Country: US (occurrence: US)
  Receive Date: 20131101
  Receipt Date: 20140122
  Transmission Date: 20141002
  Serious: Yes (Hospitalization, Other)
  Sender: FDA-Public Use
  Company Number: US-BAXTER-2013BAX040660

PATIENT
  Age: 36 Year
  Sex: Female
  Weight: 65 kg

DRUGS (7)
  1. DIANEAL LOW CALCIUM [Suspect]
     Indication: RENAL FAILURE CHRONIC
     Route: 033
     Dates: start: 201306
  2. DIANEAL LOW CALCIUM [Suspect]
     Indication: RENAL FAILURE CHRONIC
     Route: 033
     Dates: start: 201306
  3. DIANEAL LOW CALCIUM [Suspect]
     Indication: RENAL FAILURE CHRONIC
     Route: 033
     Dates: start: 201306
  4. DIANEAL LOW CALCIUM (ULTRABAG) [Suspect]
     Indication: RENAL FAILURE CHRONIC
     Route: 033
  5. POTASSIUM [Suspect]
     Indication: PRODUCT USED FOR UNKNOWN INDICATION
  6. LEVAQUIN [Suspect]
     Indication: ACINETOBACTER INFECTION
     Route: 048
     Dates: start: 20131028
  7. LEVAQUIN [Suspect]
     Indication: POST PROCEDURAL INFECTION

REACTIONS (15)
  - Sepsis [Recovered/Resolved]
  - Depression [Unknown]
  - Osteomyelitis [Unknown]
  - Osteonecrosis [Unknown]
  - Gangrene [Recovered/Resolved]
  - Drug dose omission [Recovered/Resolved]
  - Post procedural infection [Recovering/Resolving]
  - Acinetobacter infection [Recovering/Resolving]
  - Hypokalaemia [Recovered/Resolved]
  - Respiratory tract infection [Recovered/Resolved]
  - Blood pressure decreased [Recovered/Resolved]
  - Nausea [Recovering/Resolving]
  - Diarrhoea [Recovering/Resolving]
  - Catheter site infection [Recovered/Resolved]
  - Abdominal discomfort [Recovered/Resolved]
